FAERS Safety Report 4317106-8 (Version None)
Quarter: 2004Q1

REPORT INFORMATION
  Report Type: 
  Country: None (occurrence: None)
  Receive Date: 20040312
  Receipt Date: 20040303
  Transmission Date: 20041129
  Serious: Yes (Hospitalization, Other)
  Sender: FDA-Public Use
  Company Number: 2004202451CA

PATIENT
  Sex: Female

DRUGS (1)
  1. DALTEPARIN SODIUM VS PLACEBO (DALTEPARIN SODIUM VS PLACEBO) SOLUTION, [Suspect]
     Indication: FACTOR V LEIDEN MUTATION
     Dosage: 5000 U, QD,
     Dates: start: 20031101

REACTIONS (5)
  - CAESAREAN SECTION [None]
  - FOETAL HEART RATE DECREASED [None]
  - MATERNAL DRUGS AFFECTING FOETUS [None]
  - PREMATURE BABY [None]
  - PREMATURE SEPARATION OF PLACENTA [None]
